FAERS Safety Report 8116937-6 (Version None)
Quarter: 2012Q1

REPORT INFORMATION
  Report Type: 
  Country: None (occurrence: None)
  Receive Date: 20120206
  Receipt Date: 20120201
  Transmission Date: 20120608
  Serious: No
  Sender: FDA-Public Use
  Company Number: US-BAYER-2012-011204

PATIENT
  Sex: Male
  Weight: 104 kg

DRUGS (7)
  1. NAPROXEN (ALEVE) [Suspect]
     Dosage: 2 TABLETS AS NEEDED
     Route: 048
  2. MULTIVITAMIN PREPARATION + MINERAL SUPPLEMENT [Concomitant]
  3. GLIPIZIDE [Concomitant]
  4. NAPROXEN (ALEVE) [Suspect]
     Indication: ARTHRITIS
     Dosage: 2 TABLETS AS NEEDED
     Route: 048
  5. FISH OIL [Concomitant]
  6. ALEVE (CAPLET) [Suspect]
  7. SIMVASTATIN [Concomitant]

REACTIONS (1)
  - NO ADVERSE EVENT [None]
